FAERS Safety Report 19232068 (Version 2)
Quarter: 2021Q2

REPORT INFORMATION
  Report Type: Other
  Country: PT (occurrence: PT)
  Receive Date: 20210507
  Receipt Date: 20210513
  Transmission Date: 20210717
  Serious: Yes (Other)
  Sender: FDA-Public Use
  Company Number: PT-ROCHE-2801962

PATIENT
  Sex: Male

DRUGS (5)
  1. HIGROTON [Concomitant]
     Active Substance: CHLORTHALIDONE
  2. ASPIRINA [Concomitant]
     Active Substance: ASPIRIN
  3. ALOPURINOL [Concomitant]
     Active Substance: ALLOPURINOL
  4. ESBRIET [Suspect]
     Active Substance: PIRFENIDONE
     Indication: IDIOPATHIC PULMONARY FIBROSIS
     Route: 048
     Dates: start: 20200312
  5. JANUMET [Concomitant]
     Active Substance: METFORMIN HYDROCHLORIDE\SITAGLIPTIN PHOSPHATE

REACTIONS (3)
  - Decreased appetite [Not Recovered/Not Resolved]
  - Weight decreased [Recovered/Resolved]
  - Idiopathic pulmonary fibrosis [Not Recovered/Not Resolved]
